FAERS Safety Report 23139159 (Version 1)
Quarter: 2023Q4

REPORT INFORMATION
  Report Type: Spontaneous
  Country: US (occurrence: None)
  Receive Date: 20231102
  Receipt Date: 20231102
  Transmission Date: 20240110
  Serious: Yes (Other)
  Sender: FDA-Public Use
  Company Number: None

PATIENT
  Age: 53 Year
  Sex: Female
  Weight: 102.06 kg

DRUGS (7)
  1. LUBRICANT DROPS (POLYETHYLENE GLYCOL 400\PROPYLENE GLYCOL) [Suspect]
     Active Substance: POLYETHYLENE GLYCOL 400\PROPYLENE GLYCOL
     Indication: Dry eye
     Dosage: OTHER QUANTITY : 1-2 DROPS;?FREQUENCY : AS NEEDED;?
     Route: 031
     Dates: start: 20231003, end: 20231031
  2. LUBRICANT DROPS (POLYETHYLENE GLYCOL 400\PROPYLENE GLYCOL) [Suspect]
     Active Substance: POLYETHYLENE GLYCOL 400\PROPYLENE GLYCOL
     Indication: Eye irritation
  3. HYDROCHLOROTHIAZIDE\LISINOPRIL [Concomitant]
     Active Substance: HYDROCHLOROTHIAZIDE\LISINOPRIL
  4. Unithyroid [Concomitant]
  5. VITAMINS [Concomitant]
     Active Substance: VITAMINS
  6. VITAMIN D3 [Concomitant]
     Active Substance: CHOLECALCIFEROL
  7. CALCIUM [Concomitant]
     Active Substance: CALCIUM

REACTIONS (2)
  - Eye infection [None]
  - Product contamination microbial [None]

NARRATIVE: CASE EVENT DATE: 20231101
